FAERS Safety Report 7511227-4 (Version None)
Quarter: 2011Q2

REPORT INFORMATION
  Report Type: 
  Country: None (occurrence: None)
  Receive Date: 20110531
  Receipt Date: 20110518
  Transmission Date: 20111010
  Serious: Yes (Other)
  Sender: FDA-Public Use
  Company Number: IT-JNJFOC-20110508816

PATIENT
  Age: 84 Year
  Sex: Male

DRUGS (4)
  1. LEVOFLOXACIN [Suspect]
     Indication: PRODUCT USED FOR UNKNOWN INDICATION
     Route: 048
     Dates: start: 20110502, end: 20110502
  2. TOTALIP [Concomitant]
     Route: 065
  3. ASPIRIN [Concomitant]
     Route: 065
  4. PLAUNAC [Concomitant]
     Route: 065

REACTIONS (3)
  - DISORIENTATION [None]
  - TRANSIENT ISCHAEMIC ATTACK [None]
  - BRADYCARDIA [None]
